FAERS Safety Report 6904037-X (Version None)
Quarter: 2010Q3

REPORT INFORMATION
  Report Type: 
  Country: None (occurrence: None)
  Receive Date: 20100804
  Receipt Date: 20090303
  Transmission Date: 20110219
  Serious: No
  Sender: FDA-Public Use
  Company Number: US-PFIZER INC-2009178211

PATIENT
  Sex: Male
  Weight: 65.8 kg

DRUGS (5)
  1. LYRICA [Suspect]
     Indication: URINARY INCONTINENCE
     Dosage: 150 MG, 2X/DAY
     Route: 048
     Dates: start: 20050101
  2. LYRICA [Suspect]
     Indication: BONE DISORDER
  3. OXYCODONE [Concomitant]
     Dosage: 80 MG, 3X/DAY
  4. CYMBALTA [Concomitant]
     Dosage: 30 MG, 2X/DAY
  5. ROZEREM [Concomitant]
     Dosage: 8MG AT BEDTIME

REACTIONS (5)
  - DISTURBANCE IN ATTENTION [None]
  - DIZZINESS [None]
  - DRY MOUTH [None]
  - THINKING ABNORMAL [None]
  - VISION BLURRED [None]
